FAERS Safety Report 18024690 (Version 1)
Quarter: 2020Q3

REPORT INFORMATION
  Report Type: Spontaneous
  Country: US (occurrence: US)
  Receive Date: 20200714
  Receipt Date: 20200714
  Transmission Date: 20201103
  Serious: Yes (Death)
  Sender: FDA-Public Use
  Company Number: None

PATIENT
  Age: 89 Year
  Sex: Female

DRUGS (1)
  1. TOBRAMYCIN 300MG/5 ML NEB SLN [Suspect]
     Active Substance: TOBRAMYCIN
     Indication: BRONCHIECTASIS
     Dosage: 1 VIAL (5ML)  TWICE DAILY INHALED
     Route: 055
     Dates: start: 20170105

REACTIONS (1)
  - Death [None]

NARRATIVE: CASE EVENT DATE: 20200628
